FAERS Safety Report 7948243-4 (Version None)
Quarter: 2011Q4

REPORT INFORMATION
  Report Type: 
  Country: None (occurrence: None)
  Receive Date: 20111125
  Receipt Date: 20111118
  Transmission Date: 20120403
  Serious: Yes (Hospitalization, Other)
  Sender: FDA-Public Use
  Company Number: JPI-P-015554

PATIENT
  Age: 47 Year
  Sex: Female
  Weight: 85.7298 kg

DRUGS (13)
  1. IBUPROFEN [Concomitant]
  2. XYREM [Suspect]
     Indication: FIBROMYALGIA
     Dosage: 6 GM (3 GM, 2 IN 1 D), ORAL, (UNKNOWN, 1 IN 1 D), ORAL, 6 GM (3 GM, 2 IN 1 D), ORAL
     Route: 048
     Dates: start: 20050407
  3. XYREM [Suspect]
     Indication: CATAPLEXY
     Dosage: 6 GM (3 GM, 2 IN 1 D), ORAL, (UNKNOWN, 1 IN 1 D), ORAL, 6 GM (3 GM, 2 IN 1 D), ORAL
     Route: 048
     Dates: start: 20050407
  4. XYREM [Suspect]
     Indication: FIBROMYALGIA
     Dosage: 6 GM (3 GM, 2 IN 1 D), ORAL, (UNKNOWN, 1 IN 1 D), ORAL, 6 GM (3 GM, 2 IN 1 D), ORAL
     Route: 048
     Dates: start: 20041108
  5. XYREM [Suspect]
     Indication: CATAPLEXY
     Dosage: 6 GM (3 GM, 2 IN 1 D), ORAL, (UNKNOWN, 1 IN 1 D), ORAL, 6 GM (3 GM, 2 IN 1 D), ORAL
     Route: 048
     Dates: start: 20041108
  6. UNSPECIFIED BENZODIAZEPINES [Suspect]
     Indication: PRODUCT USED FOR UNKNOWN INDICATION
  7. ACETAMINOPHEN AND HYDROCODONE [Concomitant]
  8. UNSPECIFIED NARCOTICS [Suspect]
     Indication: PRODUCT USED FOR UNKNOWN INDICATION
  9. ZALEPLON [Concomitant]
  10. HYDROMORPHONE HCL [Concomitant]
  11. CLONAZEPAM [Concomitant]
  12. XYREM [Suspect]
     Dosage: 6 GM (6 GM, 1 IN 1 D), ORAL, 6 GM (3 GM, 2 IN 1 D), ORAL
     Route: 048
     Dates: end: 20110617
  13. PHENELZINE [Concomitant]

REACTIONS (6)
  - OVERDOSE [None]
  - MENTAL STATUS CHANGES [None]
  - RESPIRATORY ARREST [None]
  - MUSCULAR WEAKNESS [None]
  - DRY EYE [None]
  - DEHYDRATION [None]
